FAERS Safety Report 19904188 (Version 1)
Quarter: 2021Q4

REPORT INFORMATION
  Report Type: Spontaneous
  Country: TH (occurrence: TH)
  Receive Date: 20211001
  Receipt Date: 20211001
  Transmission Date: 20220303
  Serious: Yes (Other)
  Sender: FDA-Public Use
  Company Number: TH-ROCHE-2917586

PATIENT
  Age: 28 Year
  Sex: Male
  Weight: 72 kg

DRUGS (2)
  1. HEMLIBRA [Suspect]
     Active Substance: EMICIZUMAB-KXWH
     Indication: Product used for unknown indication
     Dosage: D0 - D4, D7, D14, D21
     Route: 058
  2. HEMLIBRA [Suspect]
     Active Substance: EMICIZUMAB-KXWH
     Dosage: D28, MAINTENANCE CYCLE
     Route: 058

REACTIONS (3)
  - Haemorrhage [Unknown]
  - Musculoskeletal discomfort [Unknown]
  - Muscle haemorrhage [Unknown]
